FAERS Safety Report 24238631 (Version 1)
Quarter: 2024Q3

REPORT INFORMATION
  Report Type: Spontaneous
  Country: CH (occurrence: CH)
  Receive Date: 20240822
  Receipt Date: 20240822
  Transmission Date: 20241017
  Serious: Yes (Hospitalization)
  Sender: VERTEX
  Company Number: CH-VERTEX PHARMACEUTICALS-2024-013312

PATIENT
  Age: 37 Year
  Sex: Female

DRUGS (10)
  1. TRIKAFTA [Suspect]
     Active Substance: ELEXACAFTOR\IVACAFTOR\TEZACAFTOR
     Indication: Cystic fibrosis
     Dosage: UNKNOWN DOSAGE REGIMEN
     Route: 048
     Dates: start: 2020
  2. TOBRAMYCIN [Concomitant]
     Active Substance: TOBRAMYCIN\TOBRAMYCIN SULFATE
     Dosage: 300 MG TWICE DAILY
  3. PULMOZYME [Concomitant]
     Active Substance: DORNASE ALFA
     Dosage: ONCE DAILY
  4. SODIUM CHLORIDE [Concomitant]
     Active Substance: SODIUM CHLORIDE
     Dosage: TWICE DAILY
  5. SODIUM CHLORIDE [Concomitant]
     Active Substance: SODIUM CHLORIDE
     Dosage: TWICE DAILY
  6. AZITHROMYCIN [Concomitant]
     Active Substance: AZITHROMYCIN
     Dosage: ONCE DAILY
     Route: 048
  7. CREON [Concomitant]
     Active Substance: PANCRELIPASE AMYLASE\PANCRELIPASE LIPASE\PANCRELIPASE PROTEASE
     Route: 048
  8. COLISTIN [Concomitant]
     Active Substance: COLISTIN
     Dosage: ONCE DAILY, OFTEN MISSED
  9. VITAMIN D3 [Concomitant]
     Active Substance: CHOLECALCIFEROL
  10. EMSER NASAL IRRIGATION KIT [Concomitant]

REACTIONS (2)
  - Pneumonia [Unknown]
  - Respiratory tract infection [Recovered/Resolved]
